FAERS Safety Report 15840336 (Version 2)
Quarter: 2019Q1

REPORT INFORMATION
  Report Type: Spontaneous
  Country: AU (occurrence: AU)
  Receive Date: 20190117
  Receipt Date: 20190208
  Transmission Date: 20190417
  Serious: Yes (Death, Other)
  Sender: FDA-Public Use
  Company Number: AU-009507513-1901AUS005968

PATIENT
  Age: 66 Year
  Sex: Male

DRUGS (7)
  1. TAPENTADOL [Suspect]
     Active Substance: TAPENTADOL
     Dosage: PRESENT IN PUTREFACTIVE EFFUSION
  2. DILTIAZEM. [Suspect]
     Active Substance: DILTIAZEM
     Dosage: PRESENT IN PUTREFACTIVE EFFUSION
  3. AMLODIPINE [Suspect]
     Active Substance: AMLODIPINE BESYLATE
     Dosage: CONCENTRATION IN PUTREFACTIVE EFFUSION 0.02 MG/L
  4. MIRTAZAPINE. [Suspect]
     Active Substance: MIRTAZAPINE
     Dosage: CONCENTRATION IN PUTREFACTIVE EFFUSION 0.03 MG/L
     Route: 048
  5. OXYCODONE [Suspect]
     Active Substance: OXYCODONE
     Dosage: CONCENTRATION IN PUTREFACTIVE EFFUSION 3.6 MG/L
  6. TEMAZEPAM. [Suspect]
     Active Substance: TEMAZEPAM
     Dosage: CONCENTRATION IN PUTREFACTIVE EFFUSION 0.09 MG/L
  7. ALCOHOL. [Suspect]
     Active Substance: ALCOHOL
     Dosage: CONCENTRATION IN PUTREFACTIVE EFFUSION 0.055%

REACTIONS (2)
  - Completed suicide [Fatal]
  - Toxicity to various agents [Fatal]
